FAERS Safety Report 16548601 (Version 1)
Quarter: 2019Q3

REPORT INFORMATION
  Report Type: Spontaneous
  Country: GR (occurrence: GR)
  Receive Date: 20190709
  Receipt Date: 20190709
  Transmission Date: 20191004
  Serious: Yes (Hospitalization, Other)
  Sender: FDA-Public Use
  Company Number: GR-CELGENEUS-GRC-20190611208

PATIENT
  Age: 70 Year
  Sex: Male

DRUGS (7)
  1. HYDROXYUREA. [Concomitant]
     Active Substance: HYDROXYUREA
     Indication: CHRONIC MYELOMONOCYTIC LEUKAEMIA
     Dosage: 1 GRAM
     Route: 065
     Dates: start: 201604, end: 201710
  2. AZACITIDINE. [Suspect]
     Active Substance: AZACITIDINE
     Route: 065
     Dates: start: 201802
  3. MITOXANTRONE [Concomitant]
     Active Substance: MITOXANTRONE HYDROCHLORIDE
     Indication: PRODUCT USED FOR UNKNOWN INDICATION
     Route: 065
     Dates: start: 201712
  4. ETOPOSIDE. [Concomitant]
     Active Substance: ETOPOSIDE
     Indication: PRODUCT USED FOR UNKNOWN INDICATION
     Route: 065
     Dates: start: 201712
  5. AZACITIDINE. [Suspect]
     Active Substance: AZACITIDINE
     Route: 065
  6. AZACITIDINE. [Suspect]
     Active Substance: AZACITIDINE
     Indication: CHRONIC MYELOMONOCYTIC LEUKAEMIA
     Route: 065
     Dates: start: 201711
  7. HYDROXYUREA. [Concomitant]
     Active Substance: HYDROXYUREA
     Route: 065

REACTIONS (10)
  - Respiratory failure [Unknown]
  - Febrile neutropenia [Recovered/Resolved]
  - Arthralgia [Unknown]
  - Blood lactate dehydrogenase increased [Unknown]
  - Anaemia [Not Recovered/Not Resolved]
  - Malignant pleural effusion [Unknown]
  - Neutropenia [Unknown]
  - Thrombocytopenia [Not Recovered/Not Resolved]
  - White blood cell count increased [Recovering/Resolving]
  - Lymphopenia [Unknown]
